FAERS Safety Report 5154843-X (Version None)
Quarter: 2006Q4

REPORT INFORMATION
  Report Type: 
  Country: None (occurrence: None)
  Receive Date: 20061121
  Receipt Date: 20061107
  Transmission Date: 20070319
  Serious: Yes (Hospitalization)
  Sender: FDA-Public Use
  Company Number: US-ELI_LILLY_AND_COMPANY-US200611001401

PATIENT
  Age: 81 Year
  Sex: Female
  Weight: 87.981 kg

DRUGS (2)
  1. GEMCITABINE HCL [Suspect]
     Indication: NON-SMALL CELL LUNG CANCER
  2. DOCETAXEL [Concomitant]

REACTIONS (2)
  - FEBRILE NEUTROPENIA [None]
  - NEUROPATHY [None]
